FAERS Safety Report 7421224-5 (Version None)
Quarter: 2011Q2

REPORT INFORMATION
  Report Type: 
  Country: None (occurrence: None)
  Receive Date: 20110408
  Receipt Date: 20110329
  Transmission Date: 20111010
  Serious: Yes (Death)
  Sender: FDA-Public Use
  Company Number: B0711251A

PATIENT
  Sex: 0

DRUGS (4)
  1. CYTARABINE [Suspect]
     Indication: HODGKIN'S DISEASE
  2. MELPHALAN (FORMULATION UNKNOWN) (GENERIC) (MELPHALAN) [Suspect]
     Indication: HODGKIN'S DISEASE
  3. THIOTEPA [Suspect]
     Indication: HODGKIN'S DISEASE
  4. ETOPOSIDE [Suspect]
     Indication: HODGKIN'S DISEASE

REACTIONS (1)
  - INFECTION [None]
